FAERS Safety Report 9897123 (Version 2)
Quarter: 2014Q1

REPORT INFORMATION
  Report Type: Spontaneous
  Country: CH (occurrence: CH)
  Receive Date: 20140214
  Receipt Date: 20140305
  Transmission Date: 20141002
  Serious: Yes (Hospitalization, Other)
  Sender: FDA-Public Use
  Company Number: CH-ROCHE-1348702

PATIENT
  Sex: Female

DRUGS (2)
  1. LUCENTIS [Suspect]
     Indication: MACULAR OEDEMA
     Route: 050
     Dates: start: 20140124
  2. LUCENTIS [Suspect]
     Indication: RETINAL VEIN OCCLUSION

REACTIONS (5)
  - Anterior chamber inflammation [Recovering/Resolving]
  - Eye pain [Recovering/Resolving]
  - Hypopyon [Recovering/Resolving]
  - Visual acuity reduced [Recovering/Resolving]
  - Staphylococcus test positive [Unknown]
